FAERS Safety Report 17145789 (Version 1)
Quarter: 2019Q4

REPORT INFORMATION
  Report Type: Spontaneous
  Country: DE (occurrence: DE)
  Receive Date: 20191212
  Receipt Date: 20191212
  Transmission Date: 20200122
  Serious: Yes (Other)
  Sender: FDA-Public Use
  Company Number: DE-ASTRAZENECA-2019SF74730

PATIENT
  Age: 39 Year
  Sex: Male

DRUGS (1)
  1. QUETIAPINE FUMARATE. [Suspect]
     Active Substance: QUETIAPINE FUMARATE
     Indication: PSYCHOTIC DISORDER
     Dosage: 1 TABLET/DAY AT 17:50 - 18:00
     Route: 048
     Dates: start: 2016

REACTIONS (11)
  - Nerve injury [Not Recovered/Not Resolved]
  - Head discomfort [Not Recovered/Not Resolved]
  - Depressed mood [Not Recovered/Not Resolved]
  - Disturbance in attention [Not Recovered/Not Resolved]
  - Personality change [Not Recovered/Not Resolved]
  - Insomnia [Not Recovered/Not Resolved]
  - Dizziness [Not Recovered/Not Resolved]
  - Pneumonitis [Recovering/Resolving]
  - Dysarthria [Unknown]
  - Faecal volume increased [Unknown]
  - Bowel movement irregularity [Not Recovered/Not Resolved]
